FAERS Safety Report 22161122 (Version 1)
Quarter: 2023Q1

REPORT INFORMATION
  Report Type: Other
  Country: US (occurrence: None)
  Receive Date: 20230331
  Receipt Date: 20230331
  Transmission Date: 20230418
  Serious: No
  Sender: FDA-Public Use
  Company Number: US-ROCHE-3320979

PATIENT
  Age: 29 Year
  Sex: Female
  Weight: 88.530 kg

DRUGS (2)
  1. OCREVUS [Suspect]
     Active Substance: OCRELIZUMAB
     Indication: Relapsing-remitting multiple sclerosis
     Route: 042
     Dates: start: 201809
  2. ADDERALL [Concomitant]
     Active Substance: AMPHETAMINE ASPARTATE\AMPHETAMINE SULFATE\DEXTROAMPHETAMINE SACCHARATE\DEXTROAMPHETAMINE SULFATE
     Indication: Fatigue
     Dosage: TAKE AS NEEDED WITHIN TWENTY FOUR (24) HOUR PERIOD
     Route: 048
     Dates: start: 2013

REACTIONS (2)
  - COVID-19 [Not Recovered/Not Resolved]
  - Carbohydrate deficient transferrin increased [Not Recovered/Not Resolved]

NARRATIVE: CASE EVENT DATE: 20210701
